FAERS Safety Report 10188894 (Version 1)
Quarter: 2014Q2

REPORT INFORMATION
  Report Type: Spontaneous
  Country: US (occurrence: US)
  Receive Date: 20140522
  Receipt Date: 20140522
  Transmission Date: 20141212
  Serious: No
  Sender: FDA-Public Use
  Company Number: US-SA-2014SA028606

PATIENT
  Age: 61 Year
  Sex: Female

DRUGS (8)
  1. LANTUS SOLOSTAR [Suspect]
     Indication: PRODUCT USED FOR UNKNOWN INDICATION
     Dosage: TAKEN FROM: 3 WEEEK AGO DOSE:30 UNIT(S)
     Route: 065
     Dates: start: 20140210, end: 20140228
  2. GLIMEPIRIDE [Suspect]
     Indication: PRODUCT USED FOR UNKNOWN INDICATION
     Route: 065
  3. BENADRYL [Suspect]
     Indication: PRODUCT USED FOR UNKNOWN INDICATION
     Route: 065
  4. METFORMIN [Suspect]
     Indication: PRODUCT USED FOR UNKNOWN INDICATION
     Route: 065
  5. SOLOSTAR [Concomitant]
     Dates: end: 20140227
  6. VERAPAMIL [Concomitant]
  7. LISINOPRIL [Concomitant]
  8. WARFARIN [Concomitant]

REACTIONS (9)
  - Somnolence [Unknown]
  - Nervousness [Unknown]
  - Heart rate increased [Unknown]
  - Urticaria [Recovered/Resolved]
  - Pruritus [Recovered/Resolved]
  - Lip swelling [Unknown]
  - Peripheral swelling [Unknown]
  - Injection site pain [Unknown]
  - Drug dose omission [Unknown]
